FAERS Safety Report 8172473 (Version 4)
Quarter: 2012Q4

REPORT INFORMATION
  Report Type: 
  Country: AR (occurrence: AR)
  Receive Date: 20111007
  Receipt Date: 20121005
  Transmission Date: 20130627
  Serious: Yes (Other)
  Sender: FDA-Public Use
  Company Number: AR-AMGEN-ARGSP2011050682

PATIENT
  Age: 45 Year
  Sex: Male
  Weight: 77 kg

DRUGS (2)
  1. ENBREL [Suspect]
     Indication: PSORIASIS
     Dosage: 50 mg, weekly
     Route: 058
     Dates: start: 20080711, end: 201108
  2. LOSARTAN [Concomitant]
     Dosage: UNK

REACTIONS (3)
  - Autoimmune pancreatitis [Recovered/Resolved]
  - Vision blurred [Recovered/Resolved]
  - Nasal congestion [Recovered/Resolved]
